FAERS Safety Report 5972747-7 (Version None)
Quarter: 2008Q4

REPORT INFORMATION
  Report Type: 
  Country: None (occurrence: None)
  Receive Date: 20081126
  Receipt Date: 20081126
  Transmission Date: 20090506
  Serious: Yes (Other)
  Sender: FDA-Public Use
  Company Number: None

PATIENT
  Age: 73 Year
  Sex: Female
  Weight: 48.5349 kg

DRUGS (1)
  1. TEMAZEPAM [Suspect]
     Dosage: 1 CAPSULE BEDTIME

REACTIONS (1)
  - DRUG DISPENSING ERROR [None]
